FAERS Safety Report 20193447 (Version 2)
Quarter: 2022Q1

REPORT INFORMATION
  Report Type: Report from Study
  Country: DE (occurrence: DE)
  Receive Date: 20211216
  Receipt Date: 20220121
  Transmission Date: 20220424
  Serious: Yes (Hospitalization, Other)
  Sender: FDA-Public Use
  Company Number: DE-SHIRE-SPV1-2012-00320

PATIENT
  Age: 18 Year
  Sex: Male

DRUGS (10)
  1. ELAPRASE [Suspect]
     Active Substance: IDURSULFASE
     Indication: Mucopolysaccharidosis II
     Dosage: 18 MG, 1X/WEEK
     Route: 041
     Dates: start: 20060906, end: 2008
  2. ELAPRASE [Suspect]
     Active Substance: IDURSULFASE
     Dosage: 24 MG, UNKNOWN
     Route: 041
     Dates: start: 2008
  3. ELAPRASE [Suspect]
     Active Substance: IDURSULFASE
     Dosage: 0.5 MILLIGRAM/KILOGRAM
     Route: 042
     Dates: start: 20060906
  4. ELAPRASE [Suspect]
     Active Substance: IDURSULFASE
     Dosage: 0.53 MILLIGRAM/KILOGRAM
     Route: 042
     Dates: start: 20121119
  5. LAMOTRIGINE [Concomitant]
     Active Substance: LAMOTRIGINE
     Indication: Nervous system disorder
     Dosage: 125 MG, 2X/DAY:BID
     Route: 048
     Dates: start: 20101201
  6. TAVOR                              /00273201/ [Concomitant]
     Indication: Sleep disorder
     Dosage: 1 MG, AS REQ^D
     Route: 060
     Dates: start: 20100729
  7. MOVICOL                            /01625101/ [Concomitant]
     Indication: Gastrointestinal disorder
     Dosage: 2 DF, 1X/DAY:QD
     Route: 048
     Dates: start: 2009
  8. ALBUTEROL [Concomitant]
     Active Substance: ALBUTEROL
     Indication: Respiratory disorder
     Dosage: UNK UNK, UNKNOWN
     Route: 065
     Dates: start: 2012
  9. GENISTEIN [Concomitant]
     Active Substance: GENISTEIN
     Indication: Product used for unknown indication
     Dosage: 8 MG, 2X/DAY:BID
     Route: 048
     Dates: start: 2010, end: 20120131
  10. LORAZEPAM [Concomitant]
     Active Substance: LORAZEPAM
     Indication: Sleep disorder
     Dosage: 1 MG, AS REQ^D
     Route: 060
     Dates: start: 20100729

REACTIONS (3)
  - Urinary tract infection [Recovered/Resolved]
  - Device difficult to use [Recovered/Resolved]
  - Pneumonia [Recovered/Resolved]

NARRATIVE: CASE EVENT DATE: 20120123
